FAERS Safety Report 22634524 (Version 1)
Quarter: 2023Q2

REPORT INFORMATION
  Report Type: Spontaneous
  Country: CH (occurrence: CH)
  Receive Date: 20230623
  Receipt Date: 20230623
  Transmission Date: 20230722
  Serious: Yes (Other)
  Sender: FDA-Public Use
  Company Number: CH-Merck Healthcare KGaA-9404222

PATIENT
  Age: 42 Year
  Sex: Female

DRUGS (1)
  1. GONAL-F [Suspect]
     Active Substance: FOLLITROPIN
     Indication: Product used for unknown indication
     Dosage: 900 IU/1.5 ML
     Dates: start: 2022

REACTIONS (2)
  - Musculoskeletal discomfort [Unknown]
  - Drug ineffective [Unknown]
